FAERS Safety Report 7298459-8 (Version None)
Quarter: 2011Q1

REPORT INFORMATION
  Report Type: 
  Country: None (occurrence: None)
  Receive Date: 20110214
  Receipt Date: 20110214
  Transmission Date: 20110831
  Serious: Yes (Other)
  Sender: FDA-Public Use
  Company Number: None

PATIENT
  Sex: Female
  Weight: 91.173 kg

DRUGS (2)
  1. ACTOS [Suspect]
     Indication: TYPE 2 DIABETES MELLITUS
     Dosage: 45MG ONE QD ORAL
     Route: 048
     Dates: start: 20030801
  2. METFORMIN (GLUCOPHAGE) [Suspect]
     Indication: TYPE 2 DIABETES MELLITUS
     Dosage: 1000 MG ONE BID ORAL
     Route: 048
     Dates: start: 20000728

REACTIONS (4)
  - ASTHENIA [None]
  - DIABETES MELLITUS INADEQUATE CONTROL [None]
  - ABDOMINAL PAIN [None]
  - DIARRHOEA [None]
